APPROVED DRUG PRODUCT: BUTORPHANOL TARTRATE
Active Ingredient: BUTORPHANOL TARTRATE
Strength: 1MG/SPRAY
Dosage Form/Route: SPRAY, METERED;NASAL
Application: A075759 | Product #001
Applicant: RISING PHARMA HOLDING INC
Approved: Aug 8, 2001 | RLD: No | RS: No | Type: DISCN